FAERS Safety Report 7673645-3 (Version None)
Quarter: 2011Q3

REPORT INFORMATION
  Report Type: 
  Country: None (occurrence: None)
  Receive Date: 20110804
  Receipt Date: 20110720
  Transmission Date: 20111222
  Serious: Yes (Hospitalization)
  Sender: FDA-Public Use
  Company Number: 2011MA009202

PATIENT
  Age: 43 Year
  Sex: Female

DRUGS (8)
  1. TRAZODONE HCL [Concomitant]
  2. CITALOPRAM HYDROBROMIDE [Concomitant]
  3. QUETIAPINE [Concomitant]
  4. DOCUSATE [Concomitant]
  5. FEVERALL [Suspect]
  6. GABAPENTIN [Concomitant]
  7. METHADONE HCL [Concomitant]
  8. FUROSEMIDE [Concomitant]

REACTIONS (19)
  - BLOOD CREATININE INCREASED [None]
  - CONTINUOUS HAEMODIAFILTRATION [None]
  - INCORRECT DOSE ADMINISTERED [None]
  - WHITE BLOOD CELL COUNT INCREASED [None]
  - COMA SCALE ABNORMAL [None]
  - BLOOD OSMOLARITY INCREASED [None]
  - ELECTROCARDIOGRAM QRS COMPLEX SHORTENED [None]
  - TACHYPNOEA [None]
  - ALANINE AMINOTRANSFERASE INCREASED [None]
  - CONFUSIONAL STATE [None]
  - BLOOD UREA INCREASED [None]
  - METABOLIC ACIDOSIS [None]
  - INCOHERENT [None]
  - BLOOD GLUCOSE INCREASED [None]
  - SCREAMING [None]
  - LIPASE INCREASED [None]
  - RESTLESSNESS [None]
  - ASPARTATE AMINOTRANSFERASE INCREASED [None]
  - BLOOD POTASSIUM DECREASED [None]
